FAERS Safety Report 5130751-5 (Version None)
Quarter: 2006Q4

REPORT INFORMATION
  Report Type: 
  Country: None (occurrence: None)
  Receive Date: 20061017
  Receipt Date: 20061017
  Transmission Date: 20070319
  Serious: Yes (Life-Threatening, Hospitalization)
  Sender: FDA-Public Use
  Company Number: None

PATIENT
  Sex: Male
  Weight: 83.0083 kg

DRUGS (1)
  1. COMPOUNDING (ALBUMIN IN STERILE WATER) [Suspect]

REACTIONS (6)
  - CHEST PAIN [None]
  - DYSPNOEA [None]
  - HAEMOLYSIS [None]
  - INFUSION RELATED REACTION [None]
  - NERVOUSNESS [None]
  - TACHYCARDIA [None]
